FAERS Safety Report 19789863 (Version 1)
Quarter: 2021Q3

REPORT INFORMATION
  Report Type: Spontaneous
  Country: CA (occurrence: CA)
  Receive Date: 20210905
  Receipt Date: 20210905
  Transmission Date: 20211014
  Serious: Yes (Hospitalization)
  Sender: FDA-Public Use
  Company Number: CA-TEVA-2021-CA-1948589

PATIENT
  Age: 10 Year
  Sex: Female
  Weight: 36 kg

DRUGS (10)
  1. DOXORUBICIN HYDROCHLORIDE INJECTION [Suspect]
     Active Substance: DOXORUBICIN HYDROCHLORIDE
     Indication: OSTEOSARCOMA
     Route: 065
  2. CISPLATIN INJECTION [Suspect]
     Active Substance: CISPLATIN
     Indication: OSTEOSARCOMA
     Route: 065
  3. FILGRASTIM [Concomitant]
     Active Substance: FILGRASTIM
  4. ZINECARD [Suspect]
     Active Substance: DEXRAZOXANE HYDROCHLORIDE
     Indication: OSTEOSARCOMA
     Route: 065
  5. DEXAMETHASONE. [Concomitant]
     Active Substance: DEXAMETHASONE
  6. METOCLOPRAMIDE. [Concomitant]
     Active Substance: METOCLOPRAMIDE
  7. EMEND [Concomitant]
     Active Substance: APREPITANT
  8. LORAZEPAM. [Concomitant]
     Active Substance: LORAZEPAM
  9. ONDANSETRON [Concomitant]
     Active Substance: ONDANSETRON
  10. DIPHENHYDRAMINE. [Concomitant]
     Active Substance: DIPHENHYDRAMINE

REACTIONS (1)
  - Febrile neutropenia [Recovered/Resolved]
